FAERS Safety Report 20504031 (Version 1)
Quarter: 2022Q1

REPORT INFORMATION
  Report Type: Spontaneous
  Country: FR (occurrence: FR)
  Receive Date: 20220222
  Receipt Date: 20220222
  Transmission Date: 20220424
  Serious: Yes (Other)
  Sender: FDA-Public Use
  Company Number: None

PATIENT
  Age: 71 Year
  Sex: Female

DRUGS (2)
  1. TERIPARATIDE [Suspect]
     Active Substance: TERIPARATIDE
     Indication: Osteoporosis
     Dosage: UNK UNK, UNKNOWN
     Route: 058
     Dates: start: 20220111
  2. RIFABUTIN [Suspect]
     Active Substance: RIFABUTIN
     Indication: Infection
     Dosage: UNK, UNKNOWN
     Route: 048
     Dates: start: 20220105, end: 20220113

REACTIONS (1)
  - Rash morbilliform [Not Recovered/Not Resolved]
